FAERS Safety Report 11660928 (Version 1)
Quarter: 2015Q4

REPORT INFORMATION
  Report Type: Report from Study
  Country: EC (occurrence: EC)
  Receive Date: 20151026
  Receipt Date: 20151026
  Transmission Date: 20160304
  Serious: Yes (Death)
  Sender: FDA-Public Use
  Company Number: EC-ABBVIE-15P-047-1487804-00

PATIENT
  Age: 66 Year
  Sex: Male

DRUGS (2)
  1. B COMPLEX (NON-ABBVIE) [Concomitant]
     Indication: PRODUCT USED FOR UNKNOWN INDICATION
  2. ZEMPLAR [Suspect]
     Active Substance: PARICALCITOL
     Indication: HYPERPARATHYROIDISM SECONDARY
     Route: 042
     Dates: start: 20150127, end: 20150508

REACTIONS (1)
  - Gastric infection [Fatal]

NARRATIVE: CASE EVENT DATE: 20151003
